FAERS Safety Report 7570155-9 (Version None)
Quarter: 2011Q2

REPORT INFORMATION
  Report Type: 
  Country: None (occurrence: None)
  Receive Date: 20110622
  Receipt Date: 20110622
  Transmission Date: 20111010
  Serious: No
  Sender: FDA-Public Use
  Company Number: None

PATIENT
  Age: 58 Year
  Sex: Male
  Weight: 113.3993 kg

DRUGS (1)
  1. ACTOS [Suspect]
     Indication: DIABETES MELLITUS
     Dosage: 1 A DAY 30 MG 1 A DAY
     Dates: start: 20090801, end: 20110601

REACTIONS (8)
  - OROPHARYNGEAL PAIN [None]
  - DYSPNOEA [None]
  - WEIGHT INCREASED [None]
  - FLUID RETENTION [None]
  - NASOPHARYNGITIS [None]
  - MYALGIA [None]
  - TOOTH DISORDER [None]
  - SINUSITIS [None]
